FAERS Safety Report 11162501 (Version 1)
Quarter: 2015Q2

REPORT INFORMATION
  Report Type: Spontaneous
  Country: US (occurrence: US)
  Receive Date: 20150604
  Receipt Date: 20150604
  Transmission Date: 20150821
  Serious: No
  Sender: FDA-Public Use
  Company Number: US-SA-2015SA048117

PATIENT
  Sex: Male

DRUGS (2)
  1. SOLOSTAR [Concomitant]
     Active Substance: DEVICE
     Dosage: DOSE:10 UNIT(S)
     Dates: start: 201503
  2. LANTUS SOLOSTAR [Suspect]
     Active Substance: INSULIN GLARGINE
     Indication: TYPE 2 DIABETES MELLITUS
     Dosage: DOSE:10 UNIT(S)
     Route: 065
     Dates: start: 201503

REACTIONS (3)
  - Hunger [Unknown]
  - Injection site pain [Unknown]
  - Blood glucose fluctuation [Unknown]

NARRATIVE: CASE EVENT DATE: 201503
